FAERS Safety Report 10635525 (Version 1)
Quarter: 2014Q4

REPORT INFORMATION
  Report Type: Spontaneous
  Country: US (occurrence: US)
  Receive Date: 20141205
  Receipt Date: 20141205
  Transmission Date: 20150529
  Serious: No
  Sender: FDA-Public Use
  Company Number: US-BIOMARINAP-US-2014-104269

PATIENT
  Sex: Male
  Weight: 94 kg

DRUGS (1)
  1. KUVAN [Suspect]
     Active Substance: SAPROPTERIN DIHYDROCHLORIDE
     Indication: PHENYLKETONURIA
     Dosage: 20 MG/KG, QD
     Route: 048
     Dates: start: 20140614, end: 20141001

REACTIONS (4)
  - Myalgia [Unknown]
  - Tremor [Unknown]
  - Respiratory tract infection [Unknown]
  - Effusion [Unknown]

NARRATIVE: CASE EVENT DATE: 20140925
